FAERS Safety Report 12631938 (Version 2)
Quarter: 2016Q3

REPORT INFORMATION
  Report Type: Spontaneous
  Country: US (occurrence: US)
  Receive Date: 20160808
  Receipt Date: 20160808
  Transmission Date: 20161109
  Serious: No
  Sender: FDA-Public Use
  Company Number: US-BEH-2016061466

PATIENT
  Sex: Male
  Weight: 15 kg

DRUGS (23)
  1. PREDIALYTE [Concomitant]
  2. MUCINEX [Concomitant]
     Active Substance: GUAIFENESIN
  3. RHINOCORT [Concomitant]
     Active Substance: BUDESONIDE
  4. SALINE [Concomitant]
     Active Substance: SODIUM CHLORIDE
  5. ZYRTEC [Concomitant]
     Active Substance: CETIRIZINE HYDROCHLORIDE
  6. MAALOX ANTACID [Concomitant]
     Active Substance: ALUMINUM HYDROXIDE\DIMETHICONE\MAGNESIUM HYDROXIDE
  7. SENNA [Concomitant]
     Active Substance: SENNA LEAF\SENNOSIDES\SENNOSIDES A AND B
  8. HIZENTRA [Suspect]
     Active Substance: HUMAN IMMUNOGLOBULIN G
     Indication: KERNICTERUS
     Route: 058
     Dates: start: 20110609
  9. NEURONTIN [Concomitant]
     Active Substance: GABAPENTIN
  10. OXYGEN. [Concomitant]
     Active Substance: OXYGEN
  11. PEDIASURE [Concomitant]
     Active Substance: VITAMINS
  12. MOTRIN [Concomitant]
     Active Substance: IBUPROFEN
  13. PULMICORT TURBUHALER [Concomitant]
     Active Substance: BUDESONIDE
  14. XOPENEX [Concomitant]
     Active Substance: LEVALBUTEROL HYDROCHLORIDE
  15. PEPCID [Concomitant]
     Active Substance: FAMOTIDINE
  16. ALLEGRA [Concomitant]
     Active Substance: FEXOFENADINE HYDROCHLORIDE
  17. EPIPEN [Concomitant]
     Active Substance: EPINEPHRINE
  18. IPRATROPIUM [Concomitant]
     Active Substance: IPRATROPIUM
  19. BENADRYL [Concomitant]
     Active Substance: DIPHENHYDRAMINE HYDROCHLORIDE
  20. MIRALAX [Concomitant]
     Active Substance: POLYETHYLENE GLYCOL 3350
  21. HIZENTRA [Suspect]
     Active Substance: HUMAN IMMUNOGLOBULIN G
     Indication: BRONCHOPULMONARY DYSPLASIA
     Route: 058
     Dates: start: 20110609
  22. TYLENOL [Concomitant]
     Active Substance: ACETAMINOPHEN
  23. ACIDOPHILUS [Concomitant]
     Active Substance: LACTOBACILLUS ACIDOPHILUS

REACTIONS (1)
  - Upper respiratory tract infection [Unknown]
